FAERS Safety Report 12468861 (Version 1)
Quarter: 2016Q2

REPORT INFORMATION
  Report Type: Spontaneous
  Country: ES (occurrence: ES)
  Receive Date: 20160615
  Receipt Date: 20160615
  Transmission Date: 20160815
  Serious: Yes (Other)
  Sender: FDA-Public Use
  Company Number: ES-MYLANLABS-2016M1024616

PATIENT

DRUGS (9)
  1. VALPROIC ACID. [Suspect]
     Active Substance: VALPROIC ACID
     Dosage: 500 MG/12 HOURS
     Route: 065
  2. DEXAMETHASONE. [Suspect]
     Active Substance: DEXAMETHASONE
     Indication: PERITUMOURAL OEDEMA
     Dosage: 8 MG/8 HOURS; STEP-DOWN REGIMEN
     Route: 065
  3. LAPATINIB [Interacting]
     Active Substance: LAPATINIB
     Indication: BREAST CANCER
     Dosage: 1250 MG/DAY ON DAYS 1-14 OF EACH CYCLE
     Route: 065
  4. CAPECITABINE. [Suspect]
     Active Substance: CAPECITABINE
     Indication: BREAST CANCER
     Dosage: 1500 MG/12 HOURS ON DAYS 1-14 OF EACH CYCLE
     Route: 065
  5. CAPECITABINE. [Suspect]
     Active Substance: CAPECITABINE
     Dosage: 1300 MG/12 HOURS
     Route: 065
  6. VALPROIC ACID. [Suspect]
     Active Substance: VALPROIC ACID
     Dosage: 500 MG/DAY
     Route: 065
  7. LEVETIRACETAM. [Concomitant]
     Active Substance: LEVETIRACETAM
     Indication: EPILEPSY
     Dosage: 1,000 MG/12 HOURS
     Route: 065
     Dates: start: 201302
  8. LAPATINIB [Interacting]
     Active Substance: LAPATINIB
     Dosage: 1000 MG/DAY
     Route: 065
  9. VALPROIC ACID. [Suspect]
     Active Substance: VALPROIC ACID
     Indication: EPILEPSY
     Dosage: 500 MG/8 HOURS
     Route: 065
     Dates: start: 201302

REACTIONS (10)
  - Leukocytosis [Unknown]
  - Mucosal inflammation [Unknown]
  - Vomiting [Recovering/Resolving]
  - Drug interaction [Recovered/Resolved]
  - Tremor [Recovering/Resolving]
  - Nausea [Recovering/Resolving]
  - Diarrhoea [Recovering/Resolving]
  - Oropharyngeal candidiasis [Unknown]
  - Hepatotoxicity [Recovered/Resolved]
  - Asthenia [Unknown]
